FAERS Safety Report 6381510-7 (Version None)
Quarter: 2009Q4

REPORT INFORMATION
  Report Type: 
  Country: None (occurrence: None)
  Receive Date: 20090925
  Receipt Date: 20090916
  Transmission Date: 20100525
  Serious: Yes (Death)
  Sender: FDA-Public Use
  Company Number: 385344

PATIENT
  Sex: Female

DRUGS (5)
  1. METHOTREXATE [Suspect]
     Indication: GESTATIONAL TROPHOBLASTIC TUMOUR
     Dosage: 4 CYCLES,
  2. ETOPOSIDE [Suspect]
     Indication: GESTATIONAL TROPHOBLASTIC TUMOUR
     Dosage: 4 CYCLES
  3. ACTINOMYCIN D [Suspect]
     Indication: GESTATIONAL TROPHOBLASTIC TUMOUR
     Dosage: 4 CYCLES;
  4. CYCLOPHOSPHAMIDE [Suspect]
     Indication: GESTATIONAL TROPHOBLASTIC TUMOUR
     Dosage: 4 CYCLES;
  5. ONCOVIN [Suspect]
     Indication: GESTATIONAL TROPHOBLASTIC TUMOUR
     Dosage: 4 CYCLES;

REACTIONS (3)
  - METASTASES TO LUNG [None]
  - NEUTROPENIA [None]
  - SEPSIS [None]
